FAERS Safety Report 5691300-6 (Version None)
Quarter: 2008Q2

REPORT INFORMATION
  Report Type: 
  Country: None (occurrence: None)
  Receive Date: 20080402
  Receipt Date: 20071129
  Transmission Date: 20081010
  Serious: Yes (Death, Hospitalization)
  Sender: FDA-Public Use
  Company Number: US-BAYER-US-2006-038780

PATIENT
  Age: 47 Year
  Sex: Female
  Weight: 142 kg

DRUGS (17)
  1. BETASERON [Suspect]
     Indication: SECONDARY PROGRESSIVE MULTIPLE SCLEROSIS
     Dosage: TOTAL DAILY DOSE: 8 MIU
     Route: 058
     Dates: start: 20060113, end: 20061101
  2. BETASERON [Suspect]
     Route: 058
     Dates: start: 20041130, end: 20050403
  3. PHENERGAN HCL [Concomitant]
     Dosage: TOTAL DAILY DOSE: 25 MG
  4. SYNTHROID [Concomitant]
     Dosage: TOTAL DAILY DOSE: 0.05 MG
  5. PULMICORT TURBO [Concomitant]
     Dosage: TOTAL DAILY DOSE: 1 PUFF
  6. METANX [Concomitant]
     Dosage: TOTAL DAILY DOSE: 1 DF
  7. BACLOFEN [Concomitant]
     Dosage: TOTAL DAILY DOSE: 10 MG
  8. NEURONTIN [Concomitant]
     Dosage: TOTAL DAILY DOSE: 800 MG
  9. IRON SULFATETHIAMIN COMPOUND TAB [Concomitant]
     Dosage: TOTAL DAILY DOSE: 325 MG
  10. ASPIRIN [Concomitant]
     Dosage: TOTAL DAILY DOSE: 81 MG
  11. VITAMIN CAP [Concomitant]
  12. CELEBREX [Concomitant]
     Dosage: TOTAL DAILY DOSE: 200 MG
  13. ZANAFLEX [Concomitant]
     Dosage: TOTAL DAILY DOSE: 4 MG
  14. CEFOTAXIME [Concomitant]
  15. PEPCID [Concomitant]
     Dosage: TOTAL DAILY DOSE: 40 MG
  16. IBUPROFEN [Concomitant]
  17. FOLIC ACID [Concomitant]
     Indication: FOLATE DEFICIENCY
     Dates: start: 20061101, end: 20061101

REACTIONS (23)
  - ABDOMINAL PAIN [None]
  - ACUTE RESPIRATORY FAILURE [None]
  - BACTERIAL SEPSIS [None]
  - CARDIAC ARREST [None]
  - DISSEMINATED INTRAVASCULAR COAGULATION [None]
  - ELECTROLYTE DEPLETION [None]
  - HYPERKALAEMIA [None]
  - HYPOCALCAEMIA [None]
  - HYPOTENSION [None]
  - HYPOVITAMINOSIS [None]
  - MALNUTRITION [None]
  - MULTIPLE SCLEROSIS [None]
  - NAUSEA [None]
  - PNEUMONIA ASPIRATION [None]
  - POLYURIA [None]
  - POST PROCEDURAL COMPLICATION [None]
  - RENAL FAILURE ACUTE [None]
  - RESPIRATORY ARREST [None]
  - SEPTIC SHOCK [None]
  - TACHYCARDIA [None]
  - TYPE 2 DIABETES MELLITUS [None]
  - UROSEPSIS [None]
  - VOMITING [None]
